FAERS Safety Report 8941857 (Version 1)
Quarter: 2012Q4

REPORT INFORMATION
  Report Type: 
  Country: CA (occurrence: CA)
  Receive Date: 20121130
  Receipt Date: 20121130
  Transmission Date: 20130627
  Serious: Yes (Death, Hospitalization, Other)
  Sender: FDA-Public Use
  Company Number: CA-AMGEN-KDL364921

PATIENT
  Age: 51 Year
  Sex: Female

DRUGS (1)
  1. SENSIPAR [Suspect]
     Indication: HYPERPARATHYROIDISM SECONDARY
     Dosage: UNK UNK, qd
     Dates: end: 20090915

REACTIONS (4)
  - Death [Fatal]
  - Intestinal gangrene [Unknown]
  - Gangrene [Unknown]
  - Vomiting [Unknown]
